FAERS Safety Report 8534373-5 (Version None)
Quarter: 2012Q3

REPORT INFORMATION
  Report Type: 
  Country: None (occurrence: None)
  Receive Date: 20120724
  Receipt Date: 20120718
  Transmission Date: 20120928
  Serious: Yes (Other)
  Sender: FDA-Public Use
  Company Number: CH-BAYER-2012-071458

PATIENT
  Age: 42 Year
  Sex: Male

DRUGS (2)
  1. CIPROFLOXACIN HCL [Suspect]
     Indication: ILEUS
     Dosage: 500 MG, BID
     Route: 048
     Dates: start: 20120326, end: 20120409
  2. CIPROFLOXACIN HCL [Suspect]
     Dosage: UNK
     Dates: start: 20111101

REACTIONS (1)
  - CHOREA [None]
